FAERS Safety Report 8156012-8 (Version None)
Quarter: 2012Q1

REPORT INFORMATION
  Report Type: 
  Country: None (occurrence: None)
  Receive Date: 20120103
  Receipt Date: 20111026
  Transmission Date: 20120608
  Serious: No
  Sender: FDA-Public Use
  Company Number: AE-2011-002732

PATIENT
  Age: 63 Year
  Sex: Female
  Weight: 90.7194 kg

DRUGS (16)
  1. LASIX (LASIX) [Concomitant]
  2. PREMARIN [Concomitant]
  3. ASPIRIN [Concomitant]
  4. LOTREL [Concomitant]
  5. CRESTOR [Concomitant]
  6. POTASSIUM CHLORIDE [Concomitant]
  7. CATAPRES [Concomitant]
  8. COLACE (DOCUSATE SODIUM) [Concomitant]
  9. PEGASYS [Concomitant]
  10. VITAMIN D [Concomitant]
  11. FLECAINIDE ACETATE [Concomitant]
  12. INCIVEK [Suspect]
     Dosage: 2250 MG (1125 MG, 2 IN 1 D), ORAL
     Route: 048
     Dates: start: 20110922
  13. RIBAVIRIN [Concomitant]
  14. PROMETRIUM [Concomitant]
  15. LEVOXYL [Concomitant]
  16. MVI (MULTIVITAMINS) [Concomitant]

REACTIONS (3)
  - NAUSEA [None]
  - OROPHARYNGEAL PAIN [None]
  - RHINORRHOEA [None]
